FAERS Safety Report 15110924 (Version 2)
Quarter: 2018Q4

REPORT INFORMATION
  Report Type: Report from Study
  Country: None (occurrence: US)
  Receive Date: 20180705
  Receipt Date: 20181008
  Transmission Date: 20190204
  Serious: Yes (Death, Hospitalization, Other)
  Sender: FDA-Public Use
  Company Number: US-ABBVIE-18K-163-2405816-00

PATIENT
  Age: 55 Year
  Sex: Male
  Weight: 113.5 kg

DRUGS (5)
  1. CYCOPENE [Concomitant]
     Indication: ACUTE MYELOID LEUKAEMIA
     Dosage: ONCE A MONTH FOR 5 DAYS
     Dates: start: 20180404
  2. VFEND [Concomitant]
     Active Substance: VORICONAZOLE
     Indication: PULMONARY MYCOSIS
  3. VENCLEXTA [Suspect]
     Active Substance: VENETOCLAX
     Indication: ACUTE MYELOID LEUKAEMIA
     Route: 048
     Dates: start: 20180404, end: 201804
  4. VFEND [Concomitant]
     Active Substance: VORICONAZOLE
     Indication: PULMONARY MYCOSIS
     Dates: end: 20180626
  5. VENCLEXTA [Suspect]
     Active Substance: VENETOCLAX
     Route: 048
     Dates: start: 201804, end: 201806

REACTIONS (14)
  - Febrile neutropenia [Not Recovered/Not Resolved]
  - Haemorrhage [Unknown]
  - Dyspnoea [Unknown]
  - Bacterial infection [Fatal]
  - Infection susceptibility increased [Unknown]
  - Bacterial infection [Recovered/Resolved]
  - Platelet count decreased [Recovering/Resolving]
  - Rash erythematous [Not Recovered/Not Resolved]
  - Rash vesicular [Not Recovered/Not Resolved]
  - Red blood cell count decreased [Recovering/Resolving]
  - Pulmonary congestion [Unknown]
  - Fungal infection [Unknown]
  - Fatigue [Unknown]
  - Intentional product use issue [Not Recovered/Not Resolved]

NARRATIVE: CASE EVENT DATE: 2018
